FAERS Safety Report 5797547-2 (Version None)
Quarter: 2008Q2

REPORT INFORMATION
  Report Type: 
  Country: None (occurrence: None)
  Receive Date: 20080618
  Receipt Date: 20070924
  Transmission Date: 20081010
  Serious: Yes (Other)
  Sender: FDA-Public Use
  Company Number: 200716736US

PATIENT
  Age: 59 Year
  Sex: Male

DRUGS (5)
  1. LANTUS [Suspect]
     Indication: TYPE 2 DIABETES MELLITUS
     Dosage: 40 U QPM INJ
     Route: 042
  2. OPTICLIK PEN [Suspect]
     Indication: TYPE 2 DIABETES MELLITUS
  3. ACETYLSALICYLIC ACID SRT [Suspect]
     Indication: BACK PAIN
     Dates: start: 20070101, end: 20070901
  4. ACETYLSALICYLIC ACID SRT [Suspect]
     Indication: BACK PAIN
  5. APIDRA [Concomitant]

REACTIONS (3)
  - DIZZINESS [None]
  - HYPERHIDROSIS [None]
  - HYPOGLYCAEMIC UNCONSCIOUSNESS [None]
